FAERS Safety Report 4997288-5 (Version None)
Quarter: 2006Q2

REPORT INFORMATION
  Report Type: 
  Country: None (occurrence: None)
  Receive Date: 20060505
  Receipt Date: 20060426
  Transmission Date: 20061013
  Serious: Yes (Hospitalization)
  Sender: FDA-Public Use
  Company Number: 2006055904

PATIENT
  Age: 64 Year
  Sex: Male
  Weight: 91.6266 kg

DRUGS (11)
  1. BENADRYL [Suspect]
     Indication: SEASONAL ALLERGY
     Dosage: 1 ULTRATAB ONE TIME, ORAL
     Route: 048
     Dates: start: 20060422, end: 20060422
  2. EZETIMIBE/SIMVASTATIN (EZETIMIBE, SIMVASTATIN) [Concomitant]
  3. CHROMIUM PICOLINATE (CHROMIUM PICOLINATE) [Concomitant]
  4. CANDESARTAN CILEXETIL (CANDESARTAN CILEXETIL) [Concomitant]
  5. PYRIDOXINE HCL [Concomitant]
  6. HYDROCHLOROTHIAZIDE [Concomitant]
  7. ASPIRIN [Concomitant]
  8. ERGOCALCIFEROL (ERGOCALCIFEROL) [Concomitant]
  9. OMEPRAZOLE [Concomitant]
  10. ASCORBIC ACID [Concomitant]
  11. FOLIC ACID [Concomitant]

REACTIONS (3)
  - DIZZINESS [None]
  - HEART RATE DECREASED [None]
  - ILL-DEFINED DISORDER [None]
